FAERS Safety Report 17139042 (Version 1)
Quarter: 2019Q4

REPORT INFORMATION
  Report Type: Spontaneous
  Country: US (occurrence: US)
  Receive Date: 20191210
  Receipt Date: 20191210
  Transmission Date: 20200122
  Serious: Yes (Death)
  Sender: FDA-Public Use
  Company Number: None

PATIENT
  Age: 70 Year
  Sex: Male

DRUGS (12)
  1. CAPECITABINE. [Suspect]
     Active Substance: CAPECITABINE
     Indication: GASTRIC CANCER
     Route: 048
  2. SPIRONOLACT [Concomitant]
     Active Substance: SPIRONOLACTONE
  3. ONDANSETRON [Concomitant]
     Active Substance: ONDANSETRON
  4. PROCHLORPER [Concomitant]
  5. FUROSEMIDE. [Concomitant]
     Active Substance: FUROSEMIDE
  6. PEG-3350/KCL [Concomitant]
  7. OMEPRAZOLE. [Concomitant]
     Active Substance: OMEPRAZOLE
  8. FOLIC ACID. [Concomitant]
     Active Substance: FOLIC ACID
  9. TORSEMIDE. [Concomitant]
     Active Substance: TORSEMIDE
  10. GUAIATUSS AC [Concomitant]
  11. BENZONATATE. [Concomitant]
     Active Substance: BENZONATATE
  12. DIPHENATROP [Concomitant]

REACTIONS (1)
  - Death [None]
